FAERS Safety Report 8595413-0 (Version None)
Quarter: 2012Q3

REPORT INFORMATION
  Report Type: 
  Country: None (occurrence: None)
  Receive Date: 20120815
  Receipt Date: 20120531
  Transmission Date: 20120928
  Serious: Yes (Hospitalization)
  Sender: FDA-Public Use
  Company Number: US-BRISTOL-MYERS SQUIBB COMPANY-16651333

PATIENT
  Age: 5 Decade
  Sex: Female

DRUGS (1)
  1. ONGLYZA [Suspect]

REACTIONS (1)
  - PANCREATITIS [None]
